FAERS Safety Report 5224810-6 (Version None)
Quarter: 2007Q1

REPORT INFORMATION
  Report Type: 
  Country: None (occurrence: None)
  Receive Date: 20070131
  Receipt Date: 20070122
  Transmission Date: 20070707
  Serious: Yes (Life-Threatening, Hospitalization, Other)
  Sender: FDA-Public Use
  Company Number: FR-BRISTOL-MYERS SQUIBB COMPANY-13559000

PATIENT
  Age: 56 Year
  Sex: Male
  Weight: 100 kg

DRUGS (2)
  1. APROVEL [Suspect]
     Indication: HYPERTENSION
     Route: 048
  2. PRITOR [Suspect]
     Indication: HYPERTENSION

REACTIONS (1)
  - RENAL CELL CARCINOMA STAGE UNSPECIFIED [None]
